FAERS Safety Report 7675777-2 (Version None)
Quarter: 2011Q3

REPORT INFORMATION
  Report Type: 
  Country: None (occurrence: None)
  Receive Date: 20110810
  Receipt Date: 20110802
  Transmission Date: 20111222
  Serious: Yes (Hospitalization, Other)
  Sender: FDA-Public Use
  Company Number: US-RB-031101-11

PATIENT

DRUGS (5)
  1. SUBOXONE [Suspect]
     Indication: DRUG DEPENDENCE
     Dosage: SUBLINGUAL FILM
     Route: 064
     Dates: start: 20110203, end: 20110228
  2. SUBUTEX [Suspect]
     Indication: DRUG DEPENDENCE
     Dosage: DOSING INFORMATION UNKNOWN
     Route: 064
     Dates: start: 20110301, end: 20110401
  3. PERCOCET [Suspect]
     Indication: PAIN
     Dosage: DOSING INFORMATION UNKNOWN
     Route: 064
     Dates: start: 20110216, end: 20110401
  4. COCAINE [Suspect]
     Indication: PRODUCT USED FOR UNKNOWN INDICATION
     Dosage: DOSING INFORMATION UNKNOWN
     Route: 064
     Dates: start: 20110101, end: 20110401
  5. ANTIBIOTICS [Suspect]
     Indication: TOOTH ABSCESS
     Dosage: DOSING INFORMATION UNKNOWN
     Route: 064
     Dates: start: 20110216, end: 20110101

REACTIONS (4)
  - SMALL FOR DATES BABY [None]
  - MATERNAL EXPOSURE DURING PREGNANCY [None]
  - DRUG WITHDRAWAL SYNDROME NEONATAL [None]
  - PREMATURE BABY [None]
